FAERS Safety Report 5020788-9 (Version None)
Quarter: 2006Q2

REPORT INFORMATION
  Report Type: 
  Country: None (occurrence: None)
  Receive Date: 20060608
  Receipt Date: 20060420
  Transmission Date: 20061013
  Serious: Yes (Other)
  Sender: FDA-Public Use
  Company Number: PHEH2006US05305

PATIENT
  Age: 52 Year
  Sex: Female
  Weight: 131.52 kg

DRUGS (1)
  1. TEGRETOL-XR [Suspect]
     Indication: CONVULSION
     Dosage: 300 MG, QD
     Dates: start: 20050601

REACTIONS (1)
  - WEIGHT INCREASED [None]
